FAERS Safety Report 10026825 (Version 2)
Quarter: 2014Q2

REPORT INFORMATION
  Report Type: Spontaneous
  Country: US (occurrence: US)
  Receive Date: 20140321
  Receipt Date: 20140423
  Transmission Date: 20141212
  Serious: No
  Sender: FDA-Public Use
  Company Number: US-009507513-1403USA010121

PATIENT
  Sex: Female

DRUGS (8)
  1. JANUMET XR [Suspect]
     Indication: DIABETES MELLITUS
     Dosage: TWO TABLETS ONCE IN THE MORNING
     Route: 048
     Dates: start: 20140222
  2. ATENOLOL [Concomitant]
     Dosage: 100 MG,ONCE A DAY
  3. GLYBURIDE [Concomitant]
     Dosage: 5 MG, TWICE A DAY
  4. VERAPAMIL [Concomitant]
     Dosage: 120 MG, TWICE A DAY
  5. ALLOPURINOL [Concomitant]
     Dosage: 300 MG, ONCE A DAY
  6. ATORVASTATIN [Concomitant]
     Dosage: 20 MG, ONCE A DAY
  7. LISINOPRIL [Concomitant]
     Dosage: 20 MG, TWICE A DAY
     Route: 048
  8. FUROSEMIDE [Concomitant]
     Dosage: ONCE A DAY
     Route: 048

REACTIONS (3)
  - Retching [Unknown]
  - Product size issue [Unknown]
  - Wrong technique in drug usage process [Unknown]
